FAERS Safety Report 8906436 (Version 1)
Quarter: 2012Q4

REPORT INFORMATION
  Report Type: Spontaneous
  Country: US (occurrence: None)
  Receive Date: 20121112
  Receipt Date: 20121112
  Transmission Date: 20130627
  Serious: No
  Sender: FDA-Public Use
  Company Number: None

PATIENT
  Age: 54 Year
  Sex: Female
  Weight: 80.9 kg

DRUGS (1)
  1. MULTIHANCE [Suspect]
     Indication: MRI
     Dosage: 0.1 mL/kg (9 mL)
     Dates: start: 20120918

REACTIONS (6)
  - Abdominal pain [None]
  - Dizziness [None]
  - Dyspnoea [None]
  - Skin warm [None]
  - Hypertension [None]
  - Nausea [None]
